FAERS Safety Report 7113343-8 (Version None)
Quarter: 2010Q4

REPORT INFORMATION
  Report Type: 
  Country: None (occurrence: None)
  Receive Date: 20101119
  Receipt Date: 20101110
  Transmission Date: 20110411
  Serious: Yes (Other)
  Sender: FDA-Public Use
  Company Number: US-ASTRAZENECA-2010SE29820

PATIENT
  Age: 80 Year
  Sex: Male
  Weight: 113.4 kg

DRUGS (2)
  1. ZOLADEX [Suspect]
     Indication: PROSTATE CANCER
     Route: 058
     Dates: start: 20090101
  2. BICALUTAMIDE [Concomitant]
     Indication: PROSTATE CANCER
     Route: 065

REACTIONS (2)
  - BONE CANCER METASTATIC [None]
  - WEIGHT INCREASED [None]
